FAERS Safety Report 8225555-0 (Version None)
Quarter: 2012Q1

REPORT INFORMATION
  Report Type: 
  Country: None (occurrence: None)
  Receive Date: 20120321
  Receipt Date: 20120316
  Transmission Date: 20120608
  Serious: Yes (Death, Hospitalization)
  Sender: FDA-Public Use
  Company Number: PHHY2012JP023944

PATIENT
  Age: 75 Year
  Sex: Male

DRUGS (7)
  1. CIPROFLOXACIN [Suspect]
     Indication: PSEUDOMONAS INFECTION
     Dosage: 300 MG, BID
  2. CIPROFLOXACIN [Suspect]
     Indication: PNEUMONIA KLEBSIELLA
  3. MEROPENEM [Suspect]
     Indication: PSEUDOMONAS INFECTION
     Dosage: 0.5 MG, BID
  4. MEROPENEM [Suspect]
     Indication: PNEUMONIA KLEBSIELLA
  5. MICAFUNGIN [Suspect]
     Dosage: 150 MG, PER DAY
  6. MICAFUNGIN [Suspect]
     Dosage: 300 MG, PER DAY
  7. PREDNISOLONE [Concomitant]
     Indication: RHEUMATOID ARTHRITIS
     Dosage: 40 MG, PER DAY

REACTIONS (4)
  - TRICHOSPORON INFECTION [None]
  - RESPIRATORY FAILURE [None]
  - PNEUMONIA CRYPTOCOCCAL [None]
  - CRYPTOSPORIDIOSIS INFECTION [None]
